FAERS Safety Report 8158014-4 (Version None)
Quarter: 2012Q1

REPORT INFORMATION
  Report Type: 
  Country: None (occurrence: None)
  Receive Date: 20120222
  Receipt Date: 20120214
  Transmission Date: 20120608
  Serious: Yes (Other)
  Sender: FDA-Public Use
  Company Number: PHHY2012IT005253

PATIENT
  Sex: Male

DRUGS (3)
  1. ERLOTINIB HYDROCHLORIDE [Concomitant]
     Dosage: UNK UKN, UNK
     Dates: start: 20101029, end: 20110701
  2. ZOMETA [Suspect]
     Indication: LUNG NEOPLASM MALIGNANT
     Dosage: 4 MG, CYCLIC
     Route: 042
     Dates: start: 20100901, end: 20110701
  3. PEMETREXED [Concomitant]
     Dosage: UNK UKN, UNK
     Dates: start: 20100716, end: 20101029

REACTIONS (1)
  - OSTEONECROSIS OF JAW [None]
